FAERS Safety Report 9725302 (Version 1)
Quarter: 2013Q4

REPORT INFORMATION
  Report Type: Spontaneous
  Country: US (occurrence: None)
  Receive Date: 20131202
  Receipt Date: 20131202
  Transmission Date: 20140711
  Serious: Yes (Other)
  Sender: FDA-Public Use
  Company Number: None

PATIENT
  Age: 32 Year
  Sex: Female
  Weight: 63.5 kg

DRUGS (1)
  1. ESCITALOPRAM [Suspect]
     Indication: ANXIETY
     Dosage: 2 PILLS, ONCE DAILY, TAKEN BY MOUTH

REACTIONS (5)
  - Abdominal pain upper [None]
  - Panic attack [None]
  - Anxiety [None]
  - Depression [None]
  - Product substitution issue [None]
